FAERS Safety Report 11289489 (Version 1)
Quarter: 2015Q3

REPORT INFORMATION
  Report Type: Spontaneous
  Country: US (occurrence: US)
  Receive Date: 20150721
  Receipt Date: 20150721
  Transmission Date: 20151125
  Serious: No
  Sender: FDA-Public Use
  Company Number: US-GALDERMA-US14002838

PATIENT
  Age: 64 Year
  Sex: Female

DRUGS (9)
  1. ORACEA [Suspect]
     Active Substance: DOXYCYCLINE
     Indication: DRY EYE
     Dosage: 40 MG
     Route: 048
     Dates: start: 20140305, end: 20140718
  2. STEROID [Concomitant]
     Active Substance: UNSPECIFIED INGREDIENT
     Indication: INTRAOCULAR PRESSURE INCREASED
  3. REFRESH PM OINTMENT [Concomitant]
     Route: 047
  4. PATADAY (OLOPATADINE HYDROCHLORIDE OPHTHALMIC SOLUTION) [Concomitant]
     Indication: EYE IRRITATION
     Dosage: 0.2% 1 DROP EACH EYE
     Route: 031
     Dates: start: 2010
  5. REFRESH PLUS TEARS [Concomitant]
     Route: 047
  6. REFRESH OPTIVE [Concomitant]
     Active Substance: CARBOXYMETHYLCELLULOSE SODIUM\GLYCERIN
     Route: 047
  7. CETAPHIL [Concomitant]
     Active Substance: AVOBENZONE\OCTOCRYLENE\TRICLOSAN
     Route: 061
  8. TUMS [Concomitant]
     Active Substance: CALCIUM CARBONATE
     Route: 048
  9. CETAPHIL CLEANSER [Concomitant]
     Route: 061

REACTIONS (4)
  - Lip swelling [Recovered/Resolved]
  - Product use issue [Recovered/Resolved]
  - Dysgeusia [Recovered/Resolved]
  - Dry eye [Recovered/Resolved]

NARRATIVE: CASE EVENT DATE: 201402
